FAERS Safety Report 18170720 (Version 4)
Quarter: 2021Q4

REPORT INFORMATION
  Report Type: Spontaneous
  Country: ES (occurrence: ES)
  Receive Date: 20200819
  Receipt Date: 20211203
  Transmission Date: 20220303
  Serious: No
  Sender: FDA-Public Use
  Company Number: ES-ALEXION-A201814351

PATIENT
  Age: 34 Year
  Sex: Female

DRUGS (4)
  1. SOLIRIS [Suspect]
     Active Substance: ECULIZUMAB
     Indication: Atypical haemolytic uraemic syndrome
     Dosage: UNK
     Route: 065
     Dates: start: 20181024
  2. SOLIRIS [Suspect]
     Active Substance: ECULIZUMAB
     Indication: Anti-neutrophil cytoplasmic antibody positive vasculitis
     Dosage: 900 MG, QW
     Route: 065
     Dates: start: 20200719
  3. SOLIRIS [Suspect]
     Active Substance: ECULIZUMAB
     Indication: Transplant
     Dosage: 1200 MG, Q2W
     Route: 042
     Dates: start: 20200817
  4. SOLIRIS [Suspect]
     Active Substance: ECULIZUMAB
     Indication: Off label use

REACTIONS (1)
  - Off label use [Unknown]
